FAERS Safety Report 4514437-3 (Version None)
Quarter: 2004Q4

REPORT INFORMATION
  Report Type: 
  Country: None (occurrence: None)
  Receive Date: 20041126
  Receipt Date: 20041116
  Transmission Date: 20050328
  Serious: Yes (Hospitalization)
  Sender: FDA-Public Use
  Company Number: US-2004-032694

PATIENT
  Age: 57 Year
  Sex: Female
  Weight: 108.8 kg

DRUGS (3)
  1. BETASERON [Suspect]
     Indication: RELAPSING-REMITTING MULTIPLE SCLEROSIS
     Dosage: 8 MIU, EVERY 2 D, SUBCUTANEOUS
     Route: 058
     Dates: start: 19960319
  2. LIORESAL [Concomitant]
  3. PAXIL [Concomitant]

REACTIONS (3)
  - CONDITION AGGRAVATED [None]
  - CYSTOCELE [None]
  - UTERINE PROLAPSE [None]
